FAERS Safety Report 24987699 (Version 1)
Quarter: 2025Q1

REPORT INFORMATION
  Report Type: Spontaneous
  Country: CA (occurrence: CA)
  Receive Date: 20250219
  Receipt Date: 20250219
  Transmission Date: 20250408
  Serious: Yes (Hospitalization)
  Sender: SANDOZ
  Company Number: CA-002147023-NVSC2025CA027702

PATIENT
  Age: 82 Year
  Sex: Female
  Weight: 62 kg

DRUGS (1)
  1. EXELON [Suspect]
     Active Substance: RIVASTIGMINE TARTRATE
     Indication: Dementia Alzheimer^s type
     Dosage: 1 DOSAGE FORM, QD (EXTENDED RELEASE, UNK UNK)
     Route: 062

REACTIONS (2)
  - Inflammation [Unknown]
  - Fall [Unknown]
